FAERS Safety Report 12278810 (Version 1)
Quarter: 2016Q2

REPORT INFORMATION
  Report Type: Report from Study
  Country: BR (occurrence: BR)
  Receive Date: 20160418
  Receipt Date: 20160418
  Transmission Date: 20160815
  Serious: Yes (Other)
  Sender: FDA-Public Use
  Company Number: PHHY2016BR042850

PATIENT
  Age: 50 Year
  Sex: Female
  Weight: 75 kg

DRUGS (4)
  1. ZOMETA [Suspect]
     Active Substance: ZOLEDRONIC ACID
     Indication: BREAST CANCER METASTATIC
     Dosage: 1 DF, EVERY 21 DAYS
     Route: 042
  2. AROMASIN [Concomitant]
     Active Substance: EXEMESTANE
     Indication: BREAST CANCER METASTATIC
     Dosage: 1 DF, QD
     Route: 048
     Dates: start: 20160202
  3. FASLODEX [Suspect]
     Active Substance: FULVESTRANT
     Indication: PRODUCT USED FOR UNKNOWN INDICATION
     Dosage: UNK
     Route: 065
     Dates: start: 201503
  4. AFINITOR [Suspect]
     Active Substance: EVEROLIMUS
     Indication: BREAST CANCER METASTATIC
     Dosage: 1 DF, QD
     Route: 048
     Dates: start: 20160202

REACTIONS (15)
  - Malaise [Recovering/Resolving]
  - Blood glucose increased [Recovered/Resolved]
  - Metastases to pelvis [Recovered/Resolved]
  - Pain in extremity [Recovered/Resolved]
  - Hypoaesthesia oral [Recovering/Resolving]
  - Metastases to bone [Recovered/Resolved]
  - Tongue disorder [Recovering/Resolving]
  - Gait disturbance [Recovered/Resolved]
  - Ageusia [Recovering/Resolving]
  - Parosmia [Recovering/Resolving]
  - Eating disorder [Recovering/Resolving]
  - Arthralgia [Recovering/Resolving]
  - Diabetes mellitus [Recovered/Resolved]
  - Tumour marker increased [Recovered/Resolved]
  - Dry mouth [Recovering/Resolving]

NARRATIVE: CASE EVENT DATE: 201509
